FAERS Safety Report 8900348 (Version 1)
Quarter: 2012Q4

REPORT INFORMATION
  Report Type: 
  Country: US (occurrence: US)
  Receive Date: 20121108
  Receipt Date: 20121108
  Transmission Date: 20130627
  Serious: No
  Sender: FDA-Public Use
  Company Number: US-AMGEN-USASP2012037873

PATIENT

DRUGS (15)
  1. ENBREL [Suspect]
     Indication: PRODUCT USED FOR UNKNOWN INDICATION
     Dosage: 50 mg, qwk
     Route: 058
  2. SPIRIVA [Concomitant]
     Dosage: UNK
  3. ASPIRIN [Concomitant]
     Dosage: 81 mg, UNK
  4. CENTRUM                            /00554501/ [Concomitant]
     Dosage: UNK
  5. OSCAL                              /00514701/ [Concomitant]
     Dosage: 200 D-3
  6. PREDNISONE [Concomitant]
     Dosage: 10 mg, UNK
  7. SYMBICORT [Concomitant]
     Dosage: UNK
  8. GABAPENTIN [Concomitant]
     Dosage: 300 mg, UNK
  9. KLOR-CON [Concomitant]
     Dosage: 10 tablet 10 meq ER
  10. LEXAPRO [Concomitant]
     Dosage: 10 mg, UNK
  11. ABILIFY [Concomitant]
     Dosage: 15 mg, UNK
  12. PRAVASTATIN [Concomitant]
     Dosage: 20 mg, UNK
  13. DIFLUNISAL [Concomitant]
     Dosage: 250 mg, UNK
  14. VERAPAMIL [Concomitant]
     Dosage: 120 mg, ER
  15. ACCOLATE [Concomitant]
     Dosage: 10 mg, UNK

REACTIONS (2)
  - Hypoaesthesia [Unknown]
  - Paraesthesia [Unknown]
